FAERS Safety Report 8588128-6 (Version None)
Quarter: 2012Q3

REPORT INFORMATION
  Report Type: 
  Country: None (occurrence: None)
  Receive Date: 20120813
  Receipt Date: 20120806
  Transmission Date: 20120928
  Serious: No
  Sender: FDA-Public Use
  Company Number: US-PFIZER INC-2010177916

PATIENT
  Age: 8 Year
  Sex: Male
  Weight: 28 kg

DRUGS (1)
  1. GENOTROPIN [Suspect]
     Indication: SMALL FOR DATES BABY
     Dosage: 1.5 MG, 1X/DAY
     Route: 058
     Dates: start: 20071001, end: 20120803

REACTIONS (1)
  - ARTHRALGIA [None]
